FAERS Safety Report 26047822 (Version 1)
Quarter: 2025Q4

REPORT INFORMATION
  Report Type: Spontaneous
  Country: US (occurrence: None)
  Receive Date: 20251114
  Receipt Date: 20251114
  Transmission Date: 20260117
  Serious: Yes (Hospitalization)
  Sender: FDA-CTU
  Company Number: None

PATIENT
  Age: 45 Year
  Sex: Female

DRUGS (1)
  1. NILOTINIB [Suspect]
     Active Substance: NILOTINIB
     Indication: Chronic myeloid leukaemia
     Dosage: 300 MG TWICE A DAY ORAL
     Route: 048
     Dates: start: 20150101

REACTIONS (2)
  - Urinary tract infection [None]
  - Oedema [None]

NARRATIVE: CASE EVENT DATE: 20251112
